FAERS Safety Report 8854688 (Version 1)
Quarter: 2012Q4

REPORT INFORMATION
  Report Type: 
  Country: CN (occurrence: CN)
  Receive Date: 20121023
  Receipt Date: 20121023
  Transmission Date: 20130627
  Serious: Yes (Other)
  Sender: FDA-Public Use
  Company Number: CN-PFIZER INC-2012261628

PATIENT
  Age: 44 Year
  Sex: Male
  Weight: 60 kg

DRUGS (1)
  1. RAPAMUNE [Suspect]
     Indication: LIVER TRANSPLANT
     Dosage: 2 ml, 1x/day
     Route: 045
     Dates: start: 20100601, end: 20100603

REACTIONS (4)
  - Gastric ulcer haemorrhage [Recovering/Resolving]
  - Haematochezia [Recovering/Resolving]
  - Off label use [Unknown]
  - Incorrect route of drug administration [Unknown]
